FAERS Safety Report 18653805 (Version 1)
Quarter: 2020Q4

REPORT INFORMATION
  Report Type: Spontaneous
  Country: US (occurrence: US)
  Receive Date: 20201222
  Receipt Date: 20201222
  Transmission Date: 20210114
  Serious: No
  Sender: FDA-Public Use
  Company Number: None

PATIENT
  Age: 58 Year
  Sex: Male
  Weight: 99 kg

DRUGS (10)
  1. CARVEDILOL. [Concomitant]
     Active Substance: CARVEDILOL
  2. LEXAPRO [Concomitant]
     Active Substance: ESCITALOPRAM OXALATE
  3. MELATONIN [Concomitant]
     Active Substance: MELATONIN
  4. BELSOMRA [Suspect]
     Active Substance: SUVOREXANT
     Indication: SLEEP DISORDER
     Dosage: ?          QUANTITY:1 TABLET(S);?
     Route: 048
  5. PLAVIX [Concomitant]
     Active Substance: CLOPIDOGREL BISULFATE
  6. KLONOPIN [Concomitant]
     Active Substance: CLONAZEPAM
  7. VITAMIN D3 [Concomitant]
     Active Substance: CHOLECALCIFEROL
  8. ADAPEX [Concomitant]
  9. FISH OIL [Concomitant]
     Active Substance: FISH OIL
  10. NIACIN. [Concomitant]
     Active Substance: NIACIN

REACTIONS (5)
  - Fungal infection [None]
  - Tinea cruris [None]
  - Tinea pedis [None]
  - Nocturia [None]
  - Fatigue [None]

NARRATIVE: CASE EVENT DATE: 20201220
